FAERS Safety Report 11942850 (Version 1)
Quarter: 2016Q1

REPORT INFORMATION
  Report Type: Spontaneous
  Country: US (occurrence: US)
  Receive Date: 20160125
  Receipt Date: 20160125
  Transmission Date: 20160526
  Serious: No
  Sender: FDA-Public Use
  Company Number: US-UNITED THERAPEUTICS-UNT-2015-009292

PATIENT
  Age: 54 Year
  Sex: Male
  Weight: 106.12 kg

DRUGS (7)
  1. REMODULIN [Suspect]
     Active Substance: TREPROSTINIL
     Dosage: 0.006  ?G/KG/MIN,CONTINUING
     Route: 058
  2. REMODULIN [Suspect]
     Active Substance: TREPROSTINIL
     Indication: PULMONARY HYPERTENSION
     Dosage: 0.002 ?G/KG/MIN,CONTINUING
     Route: 058
     Dates: start: 20150720
  3. REMODULIN [Suspect]
     Active Substance: TREPROSTINIL
     Dosage: 0.017 ?G/KG/MIN, CONTINUING
     Route: 058
  4. LETAIRIS [Concomitant]
     Active Substance: AMBRISENTAN
     Indication: PRODUCT USED FOR UNKNOWN INDICATION
  5. REMODULIN [Suspect]
     Active Substance: TREPROSTINIL
     Dosage: 0.022 ?G/KG/MIN, CONTINUING
     Route: 058
  6. REMODULIN [Suspect]
     Active Substance: TREPROSTINIL
     Dosage: UNK
  7. REVATIO [Concomitant]
     Active Substance: SILDENAFIL CITRATE
     Indication: PRODUCT USED FOR UNKNOWN INDICATION

REACTIONS (19)
  - Skin infection [Unknown]
  - Dizziness [Unknown]
  - Infusion site infection [Unknown]
  - Bone pain [Unknown]
  - Infusion site oedema [Unknown]
  - Dysgeusia [Unknown]
  - Infusion site nodule [Unknown]
  - Blood potassium decreased [Unknown]
  - Fatigue [Unknown]
  - Infusion site dysaesthesia [Recovering/Resolving]
  - Myalgia [Unknown]
  - Infusion site haemorrhage [Unknown]
  - Back pain [Unknown]
  - Chills [Unknown]
  - Pain in extremity [Unknown]
  - Oedema peripheral [Recovered/Resolved]
  - Infusion site erythema [Recovering/Resolving]
  - Infusion site pain [Unknown]
  - Infusion site discharge [Unknown]

NARRATIVE: CASE EVENT DATE: 2015
